FAERS Safety Report 14529694 (Version 8)
Quarter: 2018Q2

REPORT INFORMATION
  Report Type: Report from Study
  Country: ES (occurrence: ES)
  Receive Date: 20180214
  Receipt Date: 20180604
  Transmission Date: 20180711
  Serious: No
  Sender: FDA-Public Use
  Company Number: ES-PFIZER INC-2018060545

PATIENT
  Age: 69 Year
  Sex: Male

DRUGS (6)
  1. 5-FU /00098801/ [Suspect]
     Active Substance: FLUOROURACIL
     Dosage: 728 MG, CYCLIC (CYCLICAL, NUMBER OF UNITS IN THE INTERVAL)
     Route: 040
     Dates: start: 20150713, end: 20150713
  2. IRINOTECAN HCL [Suspect]
     Active Substance: IRINOTECAN HYDROCHLORIDE
     Indication: COLORECTAL CANCER METASTATIC
     Dosage: 327 MG, CYCLIC (CYCLICAL, NUMBER OF UNITS IN THE INTERVAL 1)
     Route: 041
     Dates: start: 20150713, end: 20150713
  3. LEUCOVORIN /00566701/ [Suspect]
     Active Substance: LEUCOVORIN
     Indication: COLORECTAL CANCER METASTATIC
     Dosage: 728 MG, CYCLIC (CYCLICAL, NUMBER OF UNITS IN THE INTERVAL 1)
     Route: 041
     Dates: start: 20150713, end: 20150713
  4. AFLIBERCEPT [Suspect]
     Active Substance: AFLIBERCEPT
     Indication: COLORECTAL CANCER METASTATIC
     Dosage: 292 MG, CYCLIC (CYCLICAL, NUMBER OF UNITS IN THE INTERVAL: 1)
     Route: 041
     Dates: start: 20150713, end: 20150713
  5. 5-FU /00098801/ [Suspect]
     Active Substance: FLUOROURACIL
     Indication: COLORECTAL CANCER METASTATIC
     Dosage: 4368 MG, (CYCLICAL, NUMBER OF UNITS IN INTERVAL: 1)
     Route: 042
     Dates: start: 20150713, end: 20150713
  6. METFORMIN [Concomitant]
     Active Substance: METFORMIN HYDROCHLORIDE
     Dosage: UNK
     Dates: start: 20120706

REACTIONS (6)
  - Neutropenia [Recovered/Resolved]
  - Diarrhoea [Recovered/Resolved]
  - Neurotoxicity [Recovering/Resolving]
  - Asthenia [Recovered/Resolved]
  - Decreased appetite [Recovered/Resolved]
  - Nausea [Recovered/Resolved]

NARRATIVE: CASE EVENT DATE: 20150714
